FAERS Safety Report 22258213 (Version 2)
Quarter: 2023Q2

REPORT INFORMATION
  Report Type: Report from Study
  Country: US (occurrence: US)
  Receive Date: 20230427
  Receipt Date: 20230504
  Transmission Date: 20230722
  Serious: No
  Sender: FDA-Public Use
  Company Number: US-002147023-NVSC2023US092709

PATIENT
  Sex: Female

DRUGS (10)
  1. COSENTYX [Suspect]
     Active Substance: SECUKINUMAB
     Indication: Psoriasis
     Dosage: 300 MG, (2 PENS (150 MG/ML SUBCUTANEOUS)
     Route: 058
  2. CLOBETASOL [Suspect]
     Active Substance: CLOBETASOL
     Indication: Psoriasis
     Route: 065
  3. KETOCONAZOLE [Suspect]
     Active Substance: KETOCONAZOLE
     Indication: Psoriasis
     Dosage: 1 DOSAGE FORM, QD
     Route: 061
  4. HYDROCORTISONE [Suspect]
     Active Substance: HYDROCORTISONE
     Indication: Psoriasis
     Dosage: 1 DOSAGE FORM, QD
     Route: 061
  5. PENICILLIN G [Suspect]
     Active Substance: PENICILLIN G
     Indication: Psoriasis
     Route: 065
  6. CODEINE [Suspect]
     Active Substance: CODEINE
     Indication: Psoriasis
     Route: 065
  7. TRIAMCINOLONE [Suspect]
     Active Substance: TRIAMCINOLONE
     Indication: Psoriasis
     Dosage: 1 DOSAGE FORM, Q2W
     Route: 065
  8. CYCLOBENZAPRINE [Suspect]
     Active Substance: CYCLOBENZAPRINE
     Indication: Psoriasis
     Dosage: 10 MG
     Route: 048
  9. DIPHENHYDRAMINE [Suspect]
     Active Substance: DIPHENHYDRAMINE
     Indication: Psoriasis
     Dosage: 25 MG
     Route: 048
  10. ALBUTEROL [Suspect]
     Active Substance: ALBUTEROL
     Indication: Psoriasis
     Dosage: 90 UG

REACTIONS (3)
  - Drug hypersensitivity [Unknown]
  - Contraindicated product administered [Unknown]
  - Product use in unapproved indication [Unknown]
